FAERS Safety Report 7178328-4 (Version None)
Quarter: 2010Q4

REPORT INFORMATION
  Report Type: 
  Country: None (occurrence: None)
  Receive Date: 20101220
  Receipt Date: 20101207
  Transmission Date: 20110411
  Serious: Yes (Other)
  Sender: FDA-Public Use
  Company Number: IN-WATSON-2010-15839

PATIENT
  Age: 28 Year
  Sex: Female

DRUGS (1)
  1. CEFUROXIME SODIUM [Suspect]
     Indication: UPPER RESPIRATORY TRACT INFECTION
     Dosage: 250 MG, TID

REACTIONS (1)
  - PANIC ATTACK [None]
